FAERS Safety Report 17114414 (Version 2)
Quarter: 2019Q4

REPORT INFORMATION
  Report Type: Spontaneous
  Country: IT (occurrence: IT)
  Receive Date: 20191205
  Receipt Date: 20191216
  Transmission Date: 20200122
  Serious: Yes (Other)
  Sender: FDA-Public Use
  Company Number: IT-LUPIN PHARMACEUTICALS INC.-2019-07951

PATIENT
  Age: 72 Year
  Sex: Male

DRUGS (2)
  1. AZACITIDINE. [Suspect]
     Active Substance: AZACITIDINE
     Indication: CHRONIC MYELOID LEUKAEMIA
     Dosage: 75 MILLIGRAM, SM, QD (28-DAY CYCLES)
     Route: 058
  2. DECITABINE. [Suspect]
     Active Substance: DECITABINE
     Indication: CHRONIC MYELOID LEUKAEMIA
     Dosage: 20 MILLIGRAM, SM
     Route: 042

REACTIONS (3)
  - Acute myeloid leukaemia [Unknown]
  - Pancytopenia [Unknown]
  - Treatment failure [Unknown]
